FAERS Safety Report 24818106 (Version 2)
Quarter: 2025Q1

REPORT INFORMATION
  Report Type: Report from Study
  Country: US (occurrence: US)
  Receive Date: 20250108
  Receipt Date: 20250305
  Transmission Date: 20250409
  Serious: Yes (Other)
  Sender: ABBVIE
  Company Number: US-ABBVIE-6073388

PATIENT
  Sex: Male

DRUGS (1)
  1. SKYRIZI [Suspect]
     Active Substance: RISANKIZUMAB-RZAA
     Indication: Psoriasis
     Route: 058
     Dates: start: 20210112

REACTIONS (4)
  - Catheterisation cardiac [Recovering/Resolving]
  - Influenza [Recovering/Resolving]
  - Coronary artery occlusion [Recovering/Resolving]
  - Coronary arterial stent insertion [Recovering/Resolving]
